FAERS Safety Report 4499794-9 (Version None)
Quarter: 2004Q4

REPORT INFORMATION
  Report Type: 
  Country: None (occurrence: None)
  Receive Date: 20041108
  Receipt Date: 20041029
  Transmission Date: 20050328
  Serious: Yes (Death, Hospitalization)
  Sender: FDA-Public Use
  Company Number: 20030012USST

PATIENT
  Age: 69 Year
  Sex: Male

DRUGS (5)
  1. PROCARBAZINE HYDROCHLORIDE CAPSULES [Suspect]
     Indication: MALIGNANT OLIGODENDROGLIOMA
     Dosage: 100 MG PO
     Route: 048
     Dates: start: 20030103, end: 20030119
  2. VALPROIC ACID [Concomitant]
  3. BELUSTINE [Concomitant]
  4. ONCOVIN [Concomitant]
  5. TRANXENE [Concomitant]

REACTIONS (19)
  - ADRENAL INSUFFICIENCY [None]
  - APLASIA [None]
  - CHILLS [None]
  - CHOLESTASIS [None]
  - CIRCULATORY COLLAPSE [None]
  - CONDITION AGGRAVATED [None]
  - CONSCIOUSNESS FLUCTUATING [None]
  - CYTOLYTIC HEPATITIS [None]
  - DERMATITIS BULLOUS [None]
  - ERYTHEMA [None]
  - HEPATITIS CHOLESTATIC [None]
  - HEPATITIS TOXIC [None]
  - HISTIOCYTOSIS HAEMATOPHAGIC [None]
  - PURPURA [None]
  - PYREXIA [None]
  - SEPSIS [None]
  - TENSION [None]
  - TOXIC EPIDERMAL NECROLYSIS [None]
  - TOXIC SKIN ERUPTION [None]
